FAERS Safety Report 9002178 (Version 2)
Quarter: 2013Q1

REPORT INFORMATION
  Report Type: Spontaneous
  Country: US (occurrence: US)
  Receive Date: 20130107
  Receipt Date: 20130110
  Transmission Date: 20140127
  Serious: No
  Sender: FDA-Public Use
  Company Number: US-009507513-1301USA000466

PATIENT
  Age: 36 None
  Sex: Female
  Weight: 81.63 kg

DRUGS (16)
  1. IMPLANON [Suspect]
     Indication: CONTRACEPTION
     Dosage: UNK
  2. IMPLANON [Suspect]
     Dosage: 1 ROD / 3 YEAR
     Route: 059
     Dates: start: 20100513
  3. CELLCEPT [Concomitant]
     Dosage: 1000MG MORNING,1000MG NIGHT
  4. KEFLEX [Concomitant]
     Dosage: 500 MG, UNK
  5. CYMBALTA [Concomitant]
     Dosage: 60 MG, UNK
  6. MORPHINE [Concomitant]
     Dosage: 120 MG, DAILY
  7. PROBIOTICA [Concomitant]
  8. LEVOTHYROXINE SODIUM [Concomitant]
     Dosage: 100 MG, DAILY
  9. XANAX [Concomitant]
     Dosage: 1 MG, TWICE DAILY
  10. CYANOCOBALAMIN [Concomitant]
     Dosage: 1 SHOT, ONCE WEEKLY
  11. DIOVAN [Concomitant]
     Dosage: 1600 MG, ONCE DAILY
  12. HYDROXYZINE HYDROCHLORIDE [Concomitant]
     Dosage: 25 MG, DAILY
  13. NEXIUM [Concomitant]
     Dosage: 40 MG, DAILY
  14. ZOFRAN [Concomitant]
     Dosage: 8 MG, AS NEEDED DAILY
  15. VIIBRYD [Concomitant]
     Dosage: 20 MG, UNK
  16. GLOBULIN, IMMUNE [Concomitant]
     Dosage: EVERY 2 WEEKS

REACTIONS (3)
  - Amenorrhoea [Recovered/Resolved]
  - Metrorrhagia [Recovered/Resolved]
  - Metrorrhagia [Not Recovered/Not Resolved]
